FAERS Safety Report 13114776 (Version 2)
Quarter: 2017Q1

REPORT INFORMATION
  Report Type: Spontaneous
  Country: KR (occurrence: KR)
  Receive Date: 20170113
  Receipt Date: 20170117
  Transmission Date: 20170428
  Serious: Yes (Hospitalization)
  Sender: FDA-Public Use
  Company Number: KR-009507513-1701KOR004842

PATIENT

DRUGS (5)
  1. DEXAMETHASONE SODIUM PHOSPHATE. [Concomitant]
     Active Substance: DEXAMETHASONE SODIUM PHOSPHATE
     Indication: PROPHYLAXIS OF NAUSEA AND VOMITING
     Dosage: 10 MG, ONCE, . STRENGTH: 5MG/ML
     Route: 042
     Dates: start: 20161227, end: 20161227
  2. ALIMTA [Concomitant]
     Active Substance: PEMETREXED DISODIUM
     Indication: CHEMOTHERAPY
     Dosage: 750 MG, ONCE, CYCLE 1
     Route: 042
     Dates: start: 20161227, end: 20161227
  3. CISPLATIN. [Concomitant]
     Active Substance: CISPLATIN
     Indication: CHEMOTHERAPY
     Dosage: 112 MG, ONCE, CYCLE 1. STRENGTH: 10MG/20ML.
     Route: 042
     Dates: start: 20161227, end: 20161227
  4. EMEND (FOSAPREPITANT DIMEGLUMINE) [Suspect]
     Active Substance: FOSAPREPITANT DIMEGLUMINE
     Indication: PROPHYLAXIS OF NAUSEA AND VOMITING
     Dosage: 150 MG, ONCE
     Route: 042
     Dates: start: 20161227, end: 20161227
  5. ALOXI [Concomitant]
     Active Substance: PALONOSETRON HYDROCHLORIDE
     Indication: PROPHYLAXIS OF NAUSEA AND VOMITING
     Dosage: UNK, ONCE
     Route: 042
     Dates: start: 20161227, end: 20161227

REACTIONS (2)
  - Pyrexia [Recovered/Resolved]
  - Palpitations [Unknown]

NARRATIVE: CASE EVENT DATE: 201612
